FAERS Safety Report 15394079 (Version 1)
Quarter: 2018Q4

REPORT INFORMATION
  Report Type: Spontaneous
  Country: AU (occurrence: AU)
  Receive Date: 20180917
  Receipt Date: 20180917
  Transmission Date: 20190204
  Serious: Yes (Hospitalization)
  Sender: FDA-Public Use
  Company Number: AU-BAXTER-2018BAX023621

PATIENT
  Sex: Female

DRUGS (4)
  1. ENDOXAN CYCLOPHOSPHAMIDE 2G (AS MONOHYDRATE) POWDER FOR INJECTION VIAL [Suspect]
     Active Substance: CYCLOPHOSPHAMIDE
     Indication: PRODUCT USED FOR UNKNOWN INDICATION
     Dosage: 4 CYCLES AS PART OF DDAC= DOXORUBICIN+CYCLOPHOSPHAMIDE
     Route: 065
     Dates: start: 20180626, end: 20180807
  2. PACLITAXEL. [Suspect]
     Active Substance: PACLITAXEL
     Indication: BREAST CANCER FEMALE
     Dosage: ONE DOSE; COMPOUNDED WITH SODIUM CHLORIDE 0.9%
     Route: 065
     Dates: start: 20180821, end: 20180821
  3. DOXORUBICIN [Suspect]
     Active Substance: DOXORUBICIN
     Indication: PRODUCT USED FOR UNKNOWN INDICATION
     Dosage: 4 CYCLES AS PART OF DDAC= DOXORUBICIN+CYCLOPHOSPHAMIDE
     Route: 065
     Dates: start: 20180626, end: 20180807
  4. SODIUM CHLORIDE (VIAFLO) 500ML [Suspect]
     Active Substance: SODIUM CHLORIDE
     Indication: MEDICATION DILUTION
     Dosage: ONE DOSE; COMPOUNDED WITH PACLITAXEL
     Route: 065
     Dates: start: 20180821, end: 20180821

REACTIONS (2)
  - Pneumonitis [Recovering/Resolving]
  - Respiratory failure [Recovering/Resolving]
